FAERS Safety Report 8552377-3 (Version None)
Quarter: 2012Q3

REPORT INFORMATION
  Report Type: 
  Country: None (occurrence: None)
  Receive Date: 20120718
  Receipt Date: 20120704
  Transmission Date: 20120928
  Serious: Yes (Hospitalization)
  Sender: FDA-Public Use
  Company Number: 2012070044

PATIENT
  Age: 72 Year
  Sex: Female

DRUGS (4)
  1. TORSEMIDE [Suspect]
     Dosage: 5 MG (5 MG, 1 IN 1 D), ORAL
     Route: 048
     Dates: end: 20120418
  2. REMERON [Suspect]
     Dosage: 15 MG (15 MG, 1 IN 1 D), ORAL
     Route: 048
     Dates: start: 20120201, end: 20120418
  3. ASPIRIN [Concomitant]
  4. CALCIMAGON D3 (COLECALCIFEROL, CALCIUM CARBONATE) [Concomitant]

REACTIONS (6)
  - ASTHENIA [None]
  - APPETITE DISORDER [None]
  - DYSPNOEA EXERTIONAL [None]
  - INAPPROPRIATE ANTIDIURETIC HORMONE SECRETION [None]
  - DEPRESSED MOOD [None]
  - DECREASED APPETITE [None]
